FAERS Safety Report 4951887-5 (Version None)
Quarter: 2006Q1

REPORT INFORMATION
  Report Type: 
  Country: None (occurrence: None)
  Receive Date: 20060323
  Receipt Date: 20050805
  Transmission Date: 20060701
  Serious: Yes (Hospitalization, Disabling)
  Sender: FDA-Public Use
  Company Number: US-MERCK-0508USA01475

PATIENT
  Age: 58 Year
  Sex: Female
  Weight: 99 kg

DRUGS (3)
  1. VIOXX [Suspect]
     Indication: OSTEOARTHRITIS
     Route: 048
     Dates: start: 20000901, end: 20040930
  2. VIOXX [Suspect]
     Route: 048
  3. VICODIN [Concomitant]
     Indication: FIBROMYALGIA
     Route: 065

REACTIONS (25)
  - ANXIETY [None]
  - ARRHYTHMIA [None]
  - ARTHRITIS BACTERIAL [None]
  - ARTHROPATHY [None]
  - CARPAL TUNNEL DECOMPRESSION [None]
  - CEREBROVASCULAR ACCIDENT [None]
  - DEPRESSION [None]
  - DISTURBANCE IN ATTENTION [None]
  - DIZZINESS [None]
  - DYSARTHRIA [None]
  - FATIGUE [None]
  - HYPERHIDROSIS [None]
  - HYPERTENSION [None]
  - LACUNAR INFARCTION [None]
  - MENISCUS LESION [None]
  - MUSCULOSKELETAL DISORDER [None]
  - NAUSEA [None]
  - NEPHROLITHIASIS [None]
  - PHOTOSENSITIVITY REACTION [None]
  - ROTATOR CUFF SYNDROME [None]
  - SLEEP DISORDER [None]
  - SPINAL DISORDER [None]
  - SYNOVIAL CYST [None]
  - TENSION HEADACHE [None]
  - TREMOR [None]
